FAERS Safety Report 12140437 (Version 8)
Quarter: 2019Q3

REPORT INFORMATION
  Report Type: Spontaneous
  Country: US (occurrence: US)
  Receive Date: 20160303
  Receipt Date: 20190709
  Transmission Date: 20191004
  Serious: Yes (Death, Hospitalization, Other)
  Sender: FDA-Public Use
  Company Number: US-PFIZER INC-2016133830

PATIENT
  Age: 78 Year
  Sex: Male

DRUGS (25)
  1. FOLIC ACID. [Concomitant]
     Active Substance: FOLIC ACID
     Dosage: 1 MG, DAILY (1 PILL)
     Route: 048
     Dates: start: 20120917
  2. AMLODIPINE BESYLATE. [Concomitant]
     Active Substance: AMLODIPINE BESYLATE
     Dosage: 10 MG, DAILY
     Route: 048
     Dates: start: 20150805
  3. AMLODIPINE BESYLATE. [Concomitant]
     Active Substance: AMLODIPINE BESYLATE
     Dosage: 5 MG, DAILY (1 PILL)
     Route: 048
     Dates: start: 20160531
  4. HYDRALAZINE HCL [Concomitant]
     Active Substance: HYDRALAZINE HYDROCHLORIDE
     Dosage: 25 MG, 3X/DAY
     Dates: start: 20150805
  5. COQ 10 [Concomitant]
     Active Substance: UBIDECARENONE
     Dosage: 200 MG, DAILY (1 PILL)
     Route: 048
     Dates: start: 20160105
  6. LYRICA [Suspect]
     Active Substance: PREGABALIN
     Dosage: 50 MG, 3X/DAY
     Route: 048
     Dates: start: 20160829
  7. LORAZEPAM. [Concomitant]
     Active Substance: LORAZEPAM
     Dosage: 1 MG, DAILY (EVERY DAY)
     Route: 048
     Dates: start: 20150805
  8. PLAVIX [Concomitant]
     Active Substance: CLOPIDOGREL BISULFATE
     Dosage: 75 MG, 1X/DAY (EVERY MORNING)
     Route: 048
     Dates: start: 20150805
  9. PREVACID [Concomitant]
     Active Substance: LANSOPRAZOLE
     Dosage: 30 MG, 1X/DAY (EVERY MORNING)
     Route: 048
     Dates: start: 20150805
  10. TAMSULOSIN HCL [Concomitant]
     Active Substance: TAMSULOSIN HYDROCHLORIDE
     Dosage: 0.4 MG, DAILY (1 PILL)
     Route: 048
     Dates: start: 20160329
  11. SILVADENE [Concomitant]
     Active Substance: SILVER SULFADIAZINE
     Indication: WOUND
     Dosage: UNK, 1X/DAY
     Route: 061
     Dates: start: 20160929
  12. SODIUM BICARBONATE. [Concomitant]
     Active Substance: SODIUM BICARBONATE
     Dosage: 1300 MG, 3X/DAY (2 PILLS)
     Route: 048
     Dates: start: 20160329
  13. NITROSTAT [Concomitant]
     Active Substance: NITROGLYCERIN
     Dosage: 0.4 MG, AS NEEDED
     Route: 060
     Dates: start: 20150805
  14. CARVEDILOL. [Concomitant]
     Active Substance: CARVEDILOL
     Dosage: 12.5 MG, 2X/DAY
     Route: 048
     Dates: start: 20150805
  15. AMBIEN [Concomitant]
     Active Substance: ZOLPIDEM TARTRATE
     Dosage: 10 MG, AS NEEDED (1 AT BED TIME)
     Dates: start: 20150902
  16. TUDORZA PRESSAIR [Concomitant]
     Active Substance: ACLIDINIUM BROMIDE
     Dosage: 1 DF, 2X/DAY  (400 MCG/ACT AEPB 1 INHALATION)
     Route: 048
     Dates: start: 20150106
  17. ZOLPIDEM TARTRATE. [Concomitant]
     Active Substance: ZOLPIDEM TARTRATE
     Dosage: 5 MG, AS NEEDED (1 PILL AT NIGHT)
     Route: 048
     Dates: start: 20161007
  18. ISOSORBIDE MONONITRATE. [Concomitant]
     Active Substance: ISOSORBIDE MONONITRATE
     Dosage: 30 MG, 1X/DAY (EVERY MORNING)
     Route: 048
     Dates: start: 20150805
  19. VENTOLIN HFA [Concomitant]
     Active Substance: ALBUTEROL SULFATE
     Indication: DYSPNOEA
     Dosage: UNK, AS NEEDED (90 BASE, 1-2 PUFFS EVERY 4-6 HOURS AS NEEDED)
     Dates: start: 20150805
  20. VENTOLIN HFA [Concomitant]
     Active Substance: ALBUTEROL SULFATE
     Indication: WHEEZING
  21. LYRICA [Suspect]
     Active Substance: PREGABALIN
     Dosage: 150 MG, 3X/DAY
     Route: 048
     Dates: start: 20150805
  22. BREO ELLIPTA [Concomitant]
     Active Substance: FLUTICASONE FUROATE\VILANTEROL TRIFENATATE
     Dosage: 1 DF, DAILY (100-25 MCG/INH AEPB, 1 INHALATION DAILY)
     Route: 048
     Dates: start: 20150106
  23. VITAMIN D3 [Concomitant]
     Active Substance: CHOLECALCIFEROL
     Dosage: 5000 IU, DAILY (1 PILL)
     Route: 048
     Dates: start: 20120917
  24. CARVEDILOL. [Concomitant]
     Active Substance: CARVEDILOL
     Dosage: 25 MG, 2X/DAY
     Route: 048
     Dates: start: 20161018
  25. FUROSEMIDE. [Concomitant]
     Active Substance: FUROSEMIDE
     Dosage: 40 MG, DAILY
     Route: 048
     Dates: start: 20150805

REACTIONS (5)
  - Renal failure [Unknown]
  - Dyspnoea [Not Recovered/Not Resolved]
  - Mental disorder [Unknown]
  - Death [Fatal]
  - Cardiac failure congestive [Not Recovered/Not Resolved]
